FAERS Safety Report 20347773 (Version 1)
Quarter: 2022Q1

REPORT INFORMATION
  Report Type: Spontaneous
  Country: FR (occurrence: FR)
  Receive Date: 20220118
  Receipt Date: 20220118
  Transmission Date: 20220423
  Serious: Yes (Hospitalization, Other)
  Sender: FDA-Public Use
  Company Number: None

PATIENT
  Age: 50 Year
  Sex: Female

DRUGS (2)
  1. OXYCODONE HYDROCHLORIDE [Suspect]
     Active Substance: OXYCODONE HYDROCHLORIDE
     Indication: Toxicity to various agents
     Dosage: 60 MG, UNK
     Route: 048
     Dates: start: 20210205, end: 20210205
  2. ZOPICLONE [Suspect]
     Active Substance: ZOPICLONE
     Indication: Toxicity to various agents
     Dosage: 367 MG, UNK
     Route: 048
     Dates: start: 20210205, end: 20210205

REACTIONS (4)
  - Hypoxia [Recovered/Resolved]
  - Respiratory acidosis [Recovered/Resolved]
  - Somnolence [Recovered/Resolved]
  - Toxicity to various agents [Recovered/Resolved]

NARRATIVE: CASE EVENT DATE: 20210205
